FAERS Safety Report 17156666 (Version 3)
Quarter: 2021Q2

REPORT INFORMATION
  Report Type: Spontaneous
  Country: JP (occurrence: JP)
  Receive Date: 20191216
  Receipt Date: 20210413
  Transmission Date: 20210716
  Serious: Yes (Death, Life-Threatening, Hospitalization, Disabling, Other)
  Sender: FDA-Public Use
  Company Number: JP-SAKK-2018SA320002AA

PATIENT
  Age: 8 Year
  Sex: Female
  Weight: 22.7 kg

DRUGS (18)
  1. CORTRIL [Concomitant]
     Active Substance: HYDROCORTISONE
     Indication: PRODUCT USED FOR UNKNOWN INDICATION
     Dosage: 5?10MG BID
     Route: 048
     Dates: start: 20181005, end: 20191204
  2. ASPARA POTASSIUM [Concomitant]
     Active Substance: POTASSIUM ASPARTATE
     Indication: PRODUCT USED FOR UNKNOWN INDICATION
     Dosage: 2.66 G, TID
     Route: 050
     Dates: start: 20181002, end: 20191206
  3. SOLDACTONE [Concomitant]
     Active Substance: CANRENOATE POTASSIUM
     Indication: PRODUCT USED FOR UNKNOWN INDICATION
     Dosage: 10MG TO BE RECONSTITUTED WITH PHYSIOLOGICAL SALINE: BID
     Route: 042
  4. SAXIZON [Concomitant]
     Active Substance: HYDROCORTISONE SODIUM SUCCINATE
     Indication: PRODUCT USED FOR UNKNOWN INDICATION
     Dosage: 15MG TO BE RECONSTITUTED WITH PHYSIOLOGICAL SALINE 20 CC: TID
     Route: 065
  5. SOLYUGEN F [Concomitant]
     Active Substance: CALCIUM CHLORIDE\POTASSIUM CHLORIDE\SODIUM ACETATE\SODIUM CHLORIDE
     Indication: PRODUCT USED FOR UNKNOWN INDICATION
     Dosage: 500 ML
     Route: 065
  6. MUCOFILIN [Concomitant]
     Indication: PRODUCT USED FOR UNKNOWN INDICATION
     Dosage: 2 ML, BID
     Route: 055
  7. OFLOXIN [OFLOXACIN HYDROCHLORIDE] [Concomitant]
     Indication: PRODUCT USED FOR UNKNOWN INDICATION
     Dosage: SEVERAL TIMES/DAY
     Route: 031
  8. ELNEOPA NF NO.1 [Concomitant]
     Indication: PRODUCT USED FOR UNKNOWN INDICATION
     Dosage: 100 ML
     Route: 065
  9. ISOTONIC SODIUM CHLORIDE SOLUTION [Concomitant]
     Active Substance: SODIUM CHLORIDE
     Indication: PRODUCT USED FOR UNKNOWN INDICATION
     Route: 065
  10. FUROSEMIDE. [Concomitant]
     Active Substance: FUROSEMIDE
     Indication: PRODUCT USED FOR UNKNOWN INDICATION
     Dosage: 3.5 MG, BID
     Route: 050
     Dates: start: 20181010, end: 20191205
  11. GASTER [CROMOGLICATE SODIUM] [Concomitant]
     Indication: PRODUCT USED FOR UNKNOWN INDICATION
     Dosage: 10MG TO BE RECONSTITUTED WITH PHYSIOLOGICAL SALINE 5CC: BID
     Route: 065
  12. FIRSTCIN [Concomitant]
     Active Substance: CEFOZOPRAN HYDROCHLORIDE
     Indication: PRODUCT USED FOR UNKNOWN INDICATION
     Dosage: 20 ML QID (0.4 G TO BE RECONSTITUTED WITH OTSUKA NORMAL SALINE 50 ML)
     Route: 042
  13. POTASSIUM CHLORIDE. [Concomitant]
     Active Substance: POTASSIUM CHLORIDE
     Indication: PRODUCT USED FOR UNKNOWN INDICATION
     Dosage: 10 ML
     Route: 065
  14. HYALEIN [Concomitant]
     Active Substance: HYALURONATE SODIUM
     Indication: PRODUCT USED FOR UNKNOWN INDICATION
     Dosage: 5 ML, A FEW DROPS/DAY
     Route: 047
  15. ALDURAZYME [Suspect]
     Active Substance: LARONIDASE
     Indication: MUCOPOLYSACCHARIDOSIS I
     Dosage: 11.6 MG, QW
     Route: 041
     Dates: start: 20180511, end: 20191128
  16. MINIRIN [Concomitant]
     Active Substance: DESMOPRESSIN ACETATE
     Indication: PRODUCT USED FOR UNKNOWN INDICATION
     Dosage: 0.5 DF IN THE MORNING AND 1 DF IN THE EVENING
     Route: 048
     Dates: start: 20181002, end: 20191205
  17. SODIUM CHLORIDE. [Concomitant]
     Active Substance: SODIUM CHLORIDE
     Indication: PRODUCT USED FOR UNKNOWN INDICATION
     Dosage: 2 G, TID
     Route: 050
     Dates: start: 20181004, end: 20191205
  18. THYRADIN S [Concomitant]
     Active Substance: LEVOTHYROXINE SODIUM
     Indication: PRODUCT USED FOR UNKNOWN INDICATION
     Dosage: 0.75 DF, QD
     Route: 048
     Dates: start: 20180926, end: 20191208

REACTIONS (19)
  - Multiple organ dysfunction syndrome [Fatal]
  - Hyponatraemia [Fatal]
  - Hypopituitarism [Fatal]
  - Oedema [Fatal]
  - Malnutrition [Fatal]
  - Hypokalaemia [Fatal]
  - Neurogenic bladder [Fatal]
  - Cardio-respiratory arrest [Fatal]
  - Electrolyte imbalance [Fatal]
  - Infection [Fatal]
  - Hypoxic-ischaemic encephalopathy [Fatal]
  - Asthenia [Fatal]
  - Diabetes insipidus [Fatal]
  - Disease progression [Fatal]
  - Feeding disorder [Fatal]
  - Hyperamylasaemia [Fatal]
  - Functional gastrointestinal disorder [Fatal]
  - Upper airway obstruction [Fatal]
  - Metabolic acidosis [Fatal]

NARRATIVE: CASE EVENT DATE: 20180721
